FAERS Safety Report 11801944 (Version 2)
Quarter: 2016Q1

REPORT INFORMATION
  Report Type: Spontaneous
  Country: JP (occurrence: JP)
  Receive Date: 20151204
  Receipt Date: 20160108
  Transmission Date: 20160525
  Serious: Yes (Other)
  Sender: FDA-Public Use
  Company Number: JP-SA-2015SA197837

PATIENT

DRUGS (1)
  1. FLUDARA [Suspect]
     Active Substance: FLUDARABINE PHOSPHATE
     Dosage: STRENGTH: 50MG
     Route: 042
     Dates: start: 20151126

REACTIONS (1)
  - Intestinal obstruction [Unknown]
